FAERS Safety Report 16177109 (Version 2)
Quarter: 2019Q2

REPORT INFORMATION
  Report Type: Spontaneous
  Country: CN (occurrence: CN)
  Receive Date: 20190410
  Receipt Date: 20190423
  Transmission Date: 20190711
  Serious: Yes (Other)
  Sender: FDA-Public Use
  Company Number: PHHY2019CN068339

PATIENT
  Age: 76 Year
  Sex: Male

DRUGS (4)
  1. BISOPROLOL FUMARATE SANDOZ [Suspect]
     Active Substance: BISOPROLOL FUMARATE
     Dosage: UNK
     Route: 048
  2. BISOPROLOL FUMARATE SANDOZ [Suspect]
     Active Substance: BISOPROLOL FUMARATE
     Indication: HYPERTENSION
     Dosage: UNK
     Route: 048
     Dates: start: 201812
  3. SALVIA OFFICINALIS LEAF [Concomitant]
     Active Substance: SAGE
     Indication: PRODUCT USED FOR UNKNOWN INDICATION
     Dosage: UNK
     Route: 065
  4. IRBESARTAN HYDROCHLOROTHIAZIDE [Suspect]
     Active Substance: HYDROCHLOROTHIAZIDE\IRBESARTAN
     Indication: HYPERTENSION
     Route: 065

REACTIONS (3)
  - Heart rate increased [Recovered/Resolved]
  - Blood pressure increased [Recovering/Resolving]
  - Extrasystoles [Recovering/Resolving]
